FAERS Safety Report 6691807-9 (Version None)
Quarter: 2010Q2

REPORT INFORMATION
  Report Type: 
  Country: None (occurrence: None)
  Receive Date: 20100422
  Receipt Date: 20090922
  Transmission Date: 20101027
  Serious: No
  Sender: FDA-Public Use
  Company Number: US-ASTRAZENECA-2009SE30952

PATIENT
  Age: 65 Year
  Sex: Female

DRUGS (1)
  1. METOPROLOL SUCCINATE/HYDROCHLOROTHIAZIDE [Suspect]
     Route: 048

REACTIONS (2)
  - ASTHENIA [None]
  - HEART RATE DECREASED [None]
